FAERS Safety Report 4366642-7 (Version None)
Quarter: 2004Q2

REPORT INFORMATION
  Report Type: 
  Country: None (occurrence: None)
  Receive Date: 20040527
  Receipt Date: 20040517
  Transmission Date: 20050107
  Serious: Yes (Hospitalization)
  Sender: FDA-Public Use
  Company Number: DE-AMGEN-UK076936

PATIENT
  Age: 51 Year
  Sex: Female

DRUGS (5)
  1. NEULASTA [Suspect]
     Indication: CHEMOTHERAPY
     Route: 058
     Dates: start: 20040310, end: 20040422
  2. FLUOROURACIL [Concomitant]
     Dates: start: 20040101
  3. EPIRUBICIN [Concomitant]
     Dates: start: 20040101
  4. CYCLOPHOSPHAMIDE [Concomitant]
     Dates: start: 20040101
  5. GRANOCYTE [Concomitant]
     Dates: start: 20040101

REACTIONS (5)
  - DRUG INEFFECTIVE [None]
  - LEUKOPENIA [None]
  - PANCYTOPENIA [None]
  - PYREXIA [None]
  - THROMBOCYTOPENIA [None]
